FAERS Safety Report 21507818 (Version 5)
Quarter: 2023Q2

REPORT INFORMATION
  Report Type: Spontaneous
  Country: US (occurrence: US)
  Receive Date: 20221026
  Receipt Date: 20230609
  Transmission Date: 20230722
  Serious: No
  Sender: FDA-Public Use
  Company Number: US-PFIZER INC-PV202200090514

PATIENT
  Age: 77 Year
  Sex: Female

DRUGS (2)
  1. IBRANCE [Suspect]
     Active Substance: PALBOCICLIB
     Dosage: 100 MG
  2. IBRANCE [Suspect]
     Active Substance: PALBOCICLIB
     Dosage: ON DAYS 1-21 OF EACH 28-DAY CYCLE. TAKE WHOLE WITH WATER, WITH OR WITHOUT FOOD, AT THE SAME EACH DAY
     Route: 048

REACTIONS (3)
  - Epistaxis [Recovering/Resolving]
  - Tooth disorder [Unknown]
  - Tremor [Unknown]
